FAERS Safety Report 24213663 (Version 1)
Quarter: 2024Q3

REPORT INFORMATION
  Report Type: Report from Study
  Country: JP (occurrence: JP)
  Receive Date: 20240815
  Receipt Date: 20240815
  Transmission Date: 20241016
  Serious: Yes (Other)
  Sender: ABBVIE
  Company Number: JP-JNJFOC-20240831167

PATIENT

DRUGS (1)
  1. IMBRUVICA [Suspect]
     Active Substance: IBRUTINIB
     Indication: Chronic graft versus host disease
     Dosage: DOSE UNKNOWN
     Route: 048

REACTIONS (8)
  - Hepatotoxicity [Unknown]
  - Nausea [Unknown]
  - Viral infection [Unknown]
  - Bacteraemia [Unknown]
  - Fungal infection [Unknown]
  - Cytopenia [Unknown]
  - Stomatitis [Unknown]
  - Diarrhoea [Unknown]
